FAERS Safety Report 21843028 (Version 1)
Quarter: 2023Q1

REPORT INFORMATION
  Report Type: Spontaneous
  Country: JP (occurrence: JP)
  Receive Date: 20230110
  Receipt Date: 20230110
  Transmission Date: 20230417
  Serious: Yes (Life-Threatening, Other)
  Sender: FDA-Public Use
  Company Number: JP-TEVA-2023-JP-2844616

PATIENT
  Age: 45 Year
  Sex: Male

DRUGS (1)
  1. ENTECAVIR [Suspect]
     Active Substance: ENTECAVIR
     Indication: Hepatitis B reactivation
     Dosage: 1 MILLIGRAM DAILY; ONCE A DAY
     Route: 065

REACTIONS (2)
  - Alanine aminotransferase increased [Unknown]
  - Drug ineffective [Unknown]
